FAERS Safety Report 8045717-5 (Version None)
Quarter: 2012Q1

REPORT INFORMATION
  Report Type: 
  Country: None (occurrence: None)
  Receive Date: 20120113
  Receipt Date: 20120109
  Transmission Date: 20120608
  Serious: Yes (Hospitalization, Other)
  Sender: FDA-Public Use
  Company Number: US-PFIZER INC-2011273595

PATIENT
  Sex: Female

DRUGS (1)
  1. PREMARIN [Suspect]
     Indication: MENOPAUSE
     Dosage: UNK

REACTIONS (17)
  - HEARING IMPAIRED [None]
  - MUSCULAR WEAKNESS [None]
  - SEXUAL RELATIONSHIP CHANGE [None]
  - FALL [None]
  - DEPRESSION [None]
  - MEMORY IMPAIRMENT [None]
  - CRYING [None]
  - FAMILY STRESS [None]
  - CEREBRAL THROMBOSIS [None]
  - STRESS [None]
  - HYPERTENSION [None]
  - VISUAL ACUITY REDUCED [None]
  - CEREBROVASCULAR ACCIDENT [None]
  - SPEECH DISORDER [None]
  - IMPAIRED DRIVING ABILITY [None]
  - FRUSTRATION [None]
  - THROMBOTIC STROKE [None]
